FAERS Safety Report 9897190 (Version 1)
Quarter: 2014Q1

REPORT INFORMATION
  Report Type: Report from Study
  Country: EG (occurrence: EG)
  Receive Date: 20140214
  Receipt Date: 20140214
  Transmission Date: 20141002
  Serious: Yes (Hospitalization)
  Sender: FDA-Public Use
  Company Number: EG-ROCHE-1348235

PATIENT
  Age: 65 Year
  Sex: Female

DRUGS (3)
  1. PEGASYS [Suspect]
     Indication: HEPATITIS C
     Route: 058
     Dates: start: 20130603, end: 20140208
  2. COPEGUS [Suspect]
     Indication: HEPATITIS C
     Route: 048
     Dates: start: 20130603, end: 20140208
  3. TOTAL PARENTERAL NUTRITION [Concomitant]
     Indication: DEHYDRATION
     Route: 042
     Dates: start: 20140208

REACTIONS (7)
  - Ascites [Not Recovered/Not Resolved]
  - Dehydration [Recovering/Resolving]
  - Vomiting [Recovered/Resolved]
  - Delirium [Recovered/Resolved]
  - Hallucination [Recovered/Resolved]
  - Hepatic enzyme increased [Unknown]
  - Jaundice [Unknown]
